FAERS Safety Report 7622108-X (Version None)
Quarter: 2011Q3

REPORT INFORMATION
  Report Type: 
  Country: None (occurrence: None)
  Receive Date: 20110720
  Receipt Date: 20110310
  Transmission Date: 20111222
  Serious: Yes (Other)
  Sender: FDA-Public Use
  Company Number: US-BAYER-2011-001606

PATIENT
  Age: 42 Year
  Sex: Male

DRUGS (3)
  1. AVELOX [Suspect]
     Indication: SINUSITIS
     Dosage: 400 MG, QD
     Route: 048
     Dates: start: 20110103, end: 20110103
  2. FLONASE [Concomitant]
  3. ALLEGRA [Concomitant]

REACTIONS (5)
  - HYPERSENSITIVITY [None]
  - PHARYNGEAL OEDEMA [None]
  - THROAT IRRITATION [None]
  - ABDOMINAL PAIN UPPER [None]
  - DIZZINESS [None]
